FAERS Safety Report 6803338-3 (Version None)
Quarter: 2010Q2

REPORT INFORMATION
  Report Type: 
  Country: None (occurrence: None)
  Receive Date: 20100628
  Receipt Date: 20100624
  Transmission Date: 20101027
  Serious: Yes (Life-Threatening)
  Sender: FDA-Public Use
  Company Number: FR-ROCHE-699981

PATIENT
  Sex: Female
  Weight: 100 kg

DRUGS (17)
  1. TOCILIZUMAB [Suspect]
     Indication: RHEUMATOID ARTHRITIS
     Dosage: DOSAGE FORM :INFUSION,
     Route: 042
     Dates: start: 20050915
  2. TOCILIZUMAB [Suspect]
     Route: 042
     Dates: start: 20091008
  3. TOCILIZUMAB [Suspect]
     Route: 042
     Dates: start: 20091105
  4. TOCILIZUMAB [Suspect]
     Route: 042
     Dates: start: 20091204
  5. TOCILIZUMAB [Suspect]
     Route: 042
     Dates: start: 20100105, end: 20100303
  6. BLINDED TOCILIZUMAB [Suspect]
     Indication: RHEUMATOID ARTHRITIS
     Route: 042
  7. METHOTREXATE [Concomitant]
     Route: 048
     Dates: start: 20070201
  8. FOLIC ACID [Concomitant]
     Dates: start: 20061212
  9. ACETAMINOPHEN [Concomitant]
     Dates: start: 20050101
  10. PERINDOPRIL [Concomitant]
     Dates: start: 20050310
  11. GLIMEPIRIDE [Concomitant]
     Dates: start: 20050101
  12. ALLOPURINOL [Concomitant]
     Dates: start: 20050101
  13. KARDEGIC [Concomitant]
     Dates: start: 20050310
  14. INDAPAMIDE [Concomitant]
     Dates: start: 20050101
  15. ATORVASTATIN CALCIUM [Concomitant]
     Dates: start: 20080215
  16. BROMAZEPAM [Concomitant]
     Dates: start: 20080814
  17. CORTICOSTEROID NOS [Concomitant]
     Dosage: FREQUENCY REPORTED AS QD

REACTIONS (1)
  - RECTAL CANCER [None]
